FAERS Safety Report 4331169-5 (Version None)
Quarter: 2004Q2

REPORT INFORMATION
  Report Type: 
  Country: None (occurrence: None)
  Receive Date: 20040405
  Receipt Date: 20031218
  Transmission Date: 20050107
  Serious: Yes (Other)
  Sender: FDA-Public Use
  Company Number: PHEH2003US11544

PATIENT
  Age: 69 Year
  Sex: Female

DRUGS (8)
  1. ZELNORM [Suspect]
     Indication: IRRITABLE BOWEL SYNDROME
     Dosage: 3 MG, QD
     Dates: start: 20030701
  2. ATENOLOL [Concomitant]
  3. PRINIVIL [Concomitant]
  4. COUMADIN [Concomitant]
  5. LANOXIN [Concomitant]
  6. PRILOSEC [Concomitant]
  7. HYDROCHLOROTHIAZIDE [Concomitant]
  8. PREMARIN                                /SCH/ [Concomitant]

REACTIONS (4)
  - DIVERTICULITIS [None]
  - RASH MACULO-PAPULAR [None]
  - SKIN BURNING SENSATION [None]
  - URTICARIA [None]
